FAERS Safety Report 19993901 (Version 1)
Quarter: 2021Q4

REPORT INFORMATION
  Report Type: Spontaneous
  Country: BR (occurrence: BR)
  Receive Date: 20211026
  Receipt Date: 20211026
  Transmission Date: 20220304
  Serious: Yes (Other)
  Sender: FDA-Public Use
  Company Number: BR-AMGEN-BRASP2021160698

PATIENT
  Sex: Female

DRUGS (1)
  1. BLINCYTO [Suspect]
     Active Substance: BLINATUMOMAB
     Indication: Philadelphia chromosome negative
     Dosage: UNK
     Route: 065
     Dates: start: 20211013

REACTIONS (5)
  - Pancytopenia [Unknown]
  - Vomiting [Unknown]
  - Tachycardia [Unknown]
  - Hypotension [Unknown]
  - Pyrexia [Unknown]

NARRATIVE: CASE EVENT DATE: 20211001
